FAERS Safety Report 25218938 (Version 2)
Quarter: 2025Q2

REPORT INFORMATION
  Report Type: Spontaneous
  Country: US (occurrence: US)
  Receive Date: 20250421
  Receipt Date: 20250504
  Transmission Date: 20250716
  Serious: Yes (Other)
  Sender: SANOFI AVENTIS
  Company Number: US-SANOFI-02491327

PATIENT
  Age: 80 Year
  Sex: Female

DRUGS (1)
  1. SOLIQUA 100/33 [Suspect]
     Active Substance: INSULIN GLARGINE\LIXISENATIDE
     Indication: Type 2 diabetes mellitus
     Dosage: 30-40U, QD
     Route: 065

REACTIONS (3)
  - Cerebrovascular accident [Unknown]
  - Blood glucose increased [Unknown]
  - Device malfunction [Unknown]
